FAERS Safety Report 13155791 (Version 2)
Quarter: 2018Q4

REPORT INFORMATION
  Report Type: Spontaneous
  Country: US (occurrence: US)
  Receive Date: 20170126
  Receipt Date: 20181205
  Transmission Date: 20190204
  Serious: No
  Sender: FDA-Public Use
  Company Number: US-ROCHE-1251203

PATIENT
  Sex: Female

DRUGS (49)
  1. ASPIRIN EC [Concomitant]
     Active Substance: ASPIRIN
     Dosage: 1 TAB DAILY
     Route: 048
  2. HYDROXYZINE HCL [Concomitant]
     Active Substance: HYDROXYZINE HYDROCHLORIDE
     Route: 048
  3. ACIDOPHILUS [Concomitant]
     Active Substance: LACTOBACILLUS ACIDOPHILUS
     Dosage: 1 TAB
     Route: 048
  4. L-LYSINE [Concomitant]
     Active Substance: LYSINE
     Route: 048
  5. BENADRYL [Concomitant]
     Active Substance: DIPHENHYDRAMINE HYDROCHLORIDE
     Route: 048
  6. LEXAPRO [Concomitant]
     Active Substance: ESCITALOPRAM OXALATE
     Route: 065
  7. PLAQUENIL [Concomitant]
     Active Substance: HYDROXYCHLOROQUINE SULFATE
  8. CODEINE [Concomitant]
     Active Substance: CODEINE
  9. DURAGESIC [Concomitant]
     Active Substance: FENTANYL
     Route: 062
  10. BUDEPRION [Concomitant]
     Active Substance: BUPROPION HYDROCHLORIDE
     Dosage: 1 TAB EVERY MORNING DAILY
     Route: 048
  11. MORPHINE SULFATE. [Concomitant]
     Active Substance: MORPHINE SULFATE
     Route: 048
  12. VITAMIN E [Concomitant]
     Active Substance: .ALPHA.-TOCOPHEROL
     Dosage: DAILY
     Route: 048
  13. COD LIVER OIL [Concomitant]
     Active Substance: COD LIVER OIL
     Dosage: 1 CAPSULE DAILY
     Route: 048
  14. VITAMIN C [Concomitant]
     Active Substance: ASCORBIC ACID
     Route: 048
  15. ANTIVERT [Concomitant]
     Active Substance: MECLIZINE HYDROCHLORIDE
     Route: 048
  16. VICODIN [Concomitant]
     Active Substance: ACETAMINOPHEN\HYDROCODONE BITARTRATE
     Indication: PAIN
     Route: 048
  17. KADIAN [Concomitant]
     Active Substance: MORPHINE SULFATE
     Route: 048
  18. VALIUM [Suspect]
     Active Substance: DIAZEPAM
     Indication: PRODUCT USED FOR UNKNOWN INDICATION
     Route: 065
  19. DILANTIN [Concomitant]
     Active Substance: PHENYTOIN
  20. NARDIL [Concomitant]
     Active Substance: PHENELZINE SULFATE
  21. DETROL LA [Concomitant]
     Active Substance: TOLTERODINE TARTRATE
     Dosage: DAILY
     Route: 048
  22. CRANBERRY. [Concomitant]
     Active Substance: CRANBERRY
     Route: 048
  23. ECOTRIN [Concomitant]
     Active Substance: ASPIRIN
     Route: 048
  24. WELLBUTRIN XL [Concomitant]
     Active Substance: BUPROPION HYDROCHLORIDE
     Route: 048
  25. NEURONTIN [Concomitant]
     Active Substance: GABAPENTIN
     Route: 048
  26. CHLORDIAZEPOXIDE. [Concomitant]
     Active Substance: CHLORDIAZEPOXIDE
  27. NORCO [Concomitant]
     Active Substance: ACETAMINOPHEN\HYDROCODONE BITARTRATE
     Indication: PAIN
     Dosage: 5-325 MG
     Route: 048
  28. PROZAC [Concomitant]
     Active Substance: FLUOXETINE HYDROCHLORIDE
  29. ZANTAC [Concomitant]
     Active Substance: RANITIDINE HYDROCHLORIDE
     Dosage: 1 TAB
     Route: 048
  30. PROVENTIL [Concomitant]
     Active Substance: ALBUTEROL
     Dosage: 2 PUFFS INH PO QID PRN
     Route: 065
  31. FIBERCON [Concomitant]
     Active Substance: CALCIUM POLYCARBOPHIL
     Route: 048
  32. VITAMIN D3 [Concomitant]
     Active Substance: CHOLECALCIFEROL
     Route: 048
  33. ATARAX [Concomitant]
     Active Substance: HYDROXYZINE HYDROCHLORIDE
     Route: 048
  34. NAPROSYN [Suspect]
     Active Substance: NAPROXEN
     Indication: PRODUCT USED FOR UNKNOWN INDICATION
     Route: 065
  35. AMITRIPTYLINE [Concomitant]
     Active Substance: AMITRIPTYLINE
  36. SULFACETAMIDE. [Concomitant]
     Active Substance: SULFACETAMIDE
  37. ALBUTEROL SULFATE. [Concomitant]
     Active Substance: ALBUTEROL SULFATE
     Dosage: INH QID PRN
     Route: 065
  38. COLACE [Concomitant]
     Active Substance: DOCUSATE SODIUM
     Dosage: DAILY
     Route: 048
  39. IMITREX [Concomitant]
     Active Substance: SUMATRIPTAN SUCCINATE
     Dosage: PRN
     Route: 065
  40. NASONEX [Concomitant]
     Active Substance: MOMETASONE FUROATE
     Dosage: 1 SPRAY
     Route: 065
  41. SULFASALAZINE. [Concomitant]
     Active Substance: SULFASALAZINE
     Route: 065
  42. VIVACTIL [Concomitant]
     Active Substance: PROTRIPTYLINE HYDROCHLORIDE
  43. DOXEPIN [Concomitant]
     Active Substance: DOXEPIN
  44. DURAGESIC [Concomitant]
     Active Substance: FENTANYL
     Route: 048
  45. TRAZODONE HYDROCHLORIDE. [Concomitant]
     Active Substance: TRAZODONE HYDROCHLORIDE
     Route: 048
  46. KLONOPIN [Suspect]
     Active Substance: CLONAZEPAM
     Indication: PRODUCT USED FOR UNKNOWN INDICATION
     Dosage: 1 TAB
     Route: 048
  47. CELEBREX [Concomitant]
     Active Substance: CELECOXIB
     Route: 048
  48. ZOLOFT [Concomitant]
     Active Substance: SERTRALINE HYDROCHLORIDE
     Dosage: DAILY
     Route: 048
  49. DESYREL [Concomitant]
     Active Substance: TRAZODONE HYDROCHLORIDE
     Route: 048

REACTIONS (15)
  - Headache [Unknown]
  - Blood pressure decreased [Unknown]
  - Rash [Unknown]
  - Anxiety [Unknown]
  - Abdominal discomfort [Unknown]
  - Paraesthesia [Unknown]
  - Nausea [Unknown]
  - Urticaria [Unknown]
  - Lymphadenopathy [Unknown]
  - Burning sensation [Unknown]
  - Drug hypersensitivity [Unknown]
  - Nasopharyngitis [Unknown]
  - Pain [Unknown]
  - Dizziness [Unknown]
  - Weight increased [Unknown]
